FAERS Safety Report 8583118-1 (Version None)
Quarter: 2012Q3

REPORT INFORMATION
  Report Type: 
  Country: None (occurrence: None)
  Receive Date: 20120809
  Receipt Date: 20120802
  Transmission Date: 20120928
  Serious: Yes (Life-Threatening)
  Sender: FDA-Public Use
  Company Number: FR-UCBSA-063090

PATIENT
  Age: 33 Year
  Sex: Female

DRUGS (7)
  1. METFORMIN HCL [Concomitant]
     Dosage: UNKNOWN DOSE
  2. TEMODAL [Suspect]
     Indication: GLIOBLASTOMA
     Dosage: DAILY DOSE:130 MG
     Route: 042
     Dates: start: 20120509, end: 20120616
  3. NEXIUM [Suspect]
     Dosage: DAILY DOSE:20 MG
     Route: 048
  4. BACTRIM DS [Suspect]
     Dosage: UNKNOWN DOSE
     Route: 048
     Dates: end: 20120621
  5. KEPPRA [Suspect]
     Indication: CONVULSION
     Route: 048
     Dates: start: 20120124, end: 20120715
  6. PREDNISOLONE [Concomitant]
     Dosage: UNKNOWN DOSE
  7. JANUVIA [Concomitant]
     Dosage: UNKNOWN DOSE

REACTIONS (2)
  - THROMBOCYTOPENIA [None]
  - PANCYTOPENIA [None]
